FAERS Safety Report 14406531 (Version 2)
Quarter: 2018Q4

REPORT INFORMATION
  Report Type: Spontaneous
  Country: AR (occurrence: AR)
  Receive Date: 20180118
  Receipt Date: 20181030
  Transmission Date: 20190204
  Serious: Yes (Death, Other)
  Sender: FDA-Public Use
  Company Number: AR-PFIZER INC-2018021831

PATIENT
  Age: 70 Year
  Sex: Male

DRUGS (1)
  1. SUTENT [Suspect]
     Active Substance: SUNITINIB MALATE
     Indication: GASTROINTESTINAL STROMAL TUMOUR
     Dosage: UNK UNK, DAILY
     Dates: start: 20170815

REACTIONS (2)
  - Death [Fatal]
  - Gallbladder disorder [Unknown]

NARRATIVE: CASE EVENT DATE: 201710
